FAERS Safety Report 19492592 (Version 1)
Quarter: 2021Q3

REPORT INFORMATION
  Report Type: Spontaneous
  Country: RU (occurrence: RU)
  Receive Date: 20210705
  Receipt Date: 20210705
  Transmission Date: 20211014
  Serious: Yes (Death, Life-Threatening, Hospitalization, Other)
  Sender: FDA-Public Use
  Company Number: RU-AMGEN-RUSSP2021099548

PATIENT
  Age: 11 Year
  Sex: Female

DRUGS (7)
  1. CYTARABINE. [Concomitant]
     Active Substance: CYTARABINE
  2. BUSULFAN. [Concomitant]
     Active Substance: BUSULFAN
  3. BLINATUMOMAB [Suspect]
     Active Substance: BLINATUMOMAB
     Indication: B PRECURSOR TYPE ACUTE LEUKAEMIA
     Dosage: UNK
     Route: 065
     Dates: start: 201605
  4. CYCLOPHOSPHAMIDE. [Concomitant]
     Active Substance: CYCLOPHOSPHAMIDE
  5. LOMUSTINE. [Concomitant]
     Active Substance: LOMUSTINE
  6. TACROLIMUS. [Concomitant]
     Active Substance: TACROLIMUS
  7. MYCOPHENOLATE MOFETIL. [Concomitant]
     Active Substance: MYCOPHENOLATE MOFETIL
     Dosage: UNK
     Dates: start: 202105

REACTIONS (8)
  - Encephalitis fungal [Recovering/Resolving]
  - Acute lymphocytic leukaemia refractory [Fatal]
  - Glossopharyngeal nerve paralysis [Not Recovered/Not Resolved]
  - Facial paresis [Not Recovered/Not Resolved]
  - IIIrd nerve paralysis [Not Recovered/Not Resolved]
  - Hemiparesis [Recovered/Resolved]
  - Partial seizures [Not Recovered/Not Resolved]
  - Malassezia infection [Recovering/Resolving]
